FAERS Safety Report 16335059 (Version 1)
Quarter: 2019Q2

REPORT INFORMATION
  Report Type: Spontaneous
  Country: US (occurrence: US)
  Receive Date: 20190520
  Receipt Date: 20190520
  Transmission Date: 20190711
  Serious: Yes (Other)
  Sender: FDA-Public Use
  Company Number: US-CONCORDIA PHARMACEUTICALS INC.-GSH201905-001396

PATIENT
  Age: 51 Year
  Sex: Female

DRUGS (5)
  1. METHOTREXATE. [Suspect]
     Active Substance: METHOTREXATE
     Indication: RHEUMATOID ARTHRITIS
     Route: 065
  2. PLAQUENIL [Suspect]
     Active Substance: HYDROXYCHLOROQUINE SULFATE
     Indication: RHEUMATOID ARTHRITIS
     Route: 065
  3. ENBREL [Suspect]
     Active Substance: ETANERCEPT
     Dosage: SINGLE DOSE PREFILLED AUTOINJECTOR
     Dates: start: 20180325, end: 20180401
  4. ENBREL [Suspect]
     Active Substance: ETANERCEPT
     Indication: RHEUMATOID ARTHRITIS
     Dosage: SINGLE DOSE PREFILLED AUTOINJECTOR
     Route: 058
     Dates: start: 20180318
  5. XELJANZ [Concomitant]
     Active Substance: TOFACITINIB CITRATE
     Dates: start: 20170220

REACTIONS (6)
  - Treatment failure [Unknown]
  - Pain in extremity [Unknown]
  - Malaise [Not Recovered/Not Resolved]
  - Goitre [Unknown]
  - Acute myocardial infarction [Recovering/Resolving]
  - Lymphadenopathy [Unknown]
